FAERS Safety Report 6163470-7 (Version None)
Quarter: 2009Q2

REPORT INFORMATION
  Report Type: 
  Country: None (occurrence: None)
  Receive Date: 20090422
  Receipt Date: 20090416
  Transmission Date: 20091009
  Serious: Yes (Death, Life-Threatening, Other)
  Sender: FDA-Public Use
  Company Number: US-AVENTIS-200913264US

PATIENT

DRUGS (1)
  1. LOVENOX [Suspect]
     Dosage: DOSE: UNK

REACTIONS (3)
  - CEREBROVASCULAR ACCIDENT [None]
  - POST PROCEDURAL HAEMORRHAGE [None]
  - THROMBOSIS [None]
